FAERS Safety Report 8296624-4 (Version None)
Quarter: 2012Q2

REPORT INFORMATION
  Report Type: 
  Country: None (occurrence: None)
  Receive Date: 20120418
  Receipt Date: 20120418
  Transmission Date: 20120825
  Serious: Yes (Other)
  Sender: FDA-Public Use
  Company Number: None

PATIENT
  Age: 43 Year
  Sex: Female
  Weight: 74.842 kg

DRUGS (2)
  1. VENLAFAXINE HCL EXTENDED-RELEASE [Suspect]
     Indication: ANXIETY
     Dosage: 3 CAPSULES
     Route: 048
     Dates: start: 20120414, end: 20120416
  2. VENLAFAXINE HCL EXTENDED-RELEASE [Suspect]
     Indication: DEPRESSION
     Dosage: 3 CAPSULES
     Route: 048
     Dates: start: 20120414, end: 20120416

REACTIONS (7)
  - IMPAIRED WORK ABILITY [None]
  - SUICIDAL IDEATION [None]
  - DEPRESSION [None]
  - ABDOMINAL PAIN UPPER [None]
  - ANXIETY [None]
  - PRODUCT SUBSTITUTION ISSUE [None]
  - CRYING [None]
